FAERS Safety Report 22827109 (Version 3)
Quarter: 2024Q1

REPORT INFORMATION
  Report Type: Spontaneous
  Country: JP (occurrence: JP)
  Receive Date: 20230816
  Receipt Date: 20240130
  Transmission Date: 20240410
  Serious: Yes (Other)
  Sender: FDA-Public Use
  Company Number: JP-ABBVIE-5368253

PATIENT
  Sex: Female

DRUGS (1)
  1. ASENAPINE MALEATE [Suspect]
     Active Substance: ASENAPINE MALEATE
     Indication: Schizophrenia
     Dosage: TABLETS UNFLAVOURED, FORM STRENGTH: 5 MILLIGRAM
     Route: 060

REACTIONS (1)
  - Dermatitis contact [Recovered/Resolved]
